FAERS Safety Report 8215240-3 (Version None)
Quarter: 2012Q1

REPORT INFORMATION
  Report Type: 
  Country: None (occurrence: None)
  Receive Date: 20120316
  Receipt Date: 20120309
  Transmission Date: 20120608
  Serious: Yes (Hospitalization)
  Sender: FDA-Public Use
  Company Number: IN-SANOFI-AVENTIS-2012SA013932

PATIENT
  Age: 46 Year
  Sex: Male
  Weight: 65 kg

DRUGS (5)
  1. RANITIDINE [Concomitant]
     Indication: PREMEDICATION
     Dates: start: 20120209, end: 20120209
  2. DOCETAXEL [Suspect]
     Indication: NON-SMALL CELL LUNG CANCER STAGE IV
     Dosage: EVERY 3 WEEKS (DAY 1 OF 21 DAY CYCLE)
     Route: 041
     Dates: start: 20120209, end: 20120209
  3. BLINDED THERAPY [Suspect]
     Indication: NON-SMALL CELL LUNG CANCER STAGE IV
     Dosage: EVERY 3 WEEKS (DAY 1 OF 21 DAY CYCLE)
     Route: 042
     Dates: start: 20120209, end: 20120209
  4. DEXAMETHASONE [Concomitant]
     Indication: PREMEDICATION
     Dates: start: 20120207, end: 20120210
  5. GRANISETRON [Concomitant]
     Indication: PREMEDICATION
     Dates: start: 20120209, end: 20120209

REACTIONS (2)
  - DYSPNOEA [None]
  - HYPONATRAEMIA [None]
